FAERS Safety Report 18509113 (Version 1)
Quarter: 2020Q4

REPORT INFORMATION
  Report Type: Spontaneous
  Country: US (occurrence: US)
  Receive Date: 20201117
  Receipt Date: 20201117
  Transmission Date: 20210114
  Serious: No
  Sender: FDA-Public Use
  Company Number: US-AUROBINDO-AUR-APL-2020-025641

PATIENT
  Age: 43 Year
  Sex: Female
  Weight: 77.09 kg

DRUGS (2)
  1. MODAFINIL TABLETS USP 100MG [Suspect]
     Active Substance: MODAFINIL
     Indication: SLEEP DISORDER
     Dosage: 1 DOSAGE FORM, DAILY
     Route: 048
  2. MODAFINIL TABLETS USP 100MG [Suspect]
     Active Substance: MODAFINIL
     Indication: HYPERSOMNIA

REACTIONS (4)
  - Urticaria [Recovered/Resolved]
  - Product substitution issue [Unknown]
  - Vertigo positional [Recovered/Resolved]
  - Drug ineffective [Unknown]
